FAERS Safety Report 14718842 (Version 2)
Quarter: 2018Q2

REPORT INFORMATION
  Report Type: Report from Study
  Country: NL (occurrence: NL)
  Receive Date: 20180405
  Receipt Date: 20180509
  Transmission Date: 20180711
  Serious: Yes (Other)
  Sender: FDA-Public Use
  Company Number: NL-AMGEN-NLDSL2018044385

PATIENT
  Age: 57 Year
  Sex: Female

DRUGS (1)
  1. REPATHA [Suspect]
     Active Substance: EVOLOCUMAB
     Indication: TYPE IIA HYPERLIPIDAEMIA
     Dosage: 140 MG/ML PEN 1 ML, Q2WK
     Route: 058
     Dates: start: 20180109, end: 20180403

REACTIONS (7)
  - Back pain [Unknown]
  - Headache [Unknown]
  - Myalgia [Recovered/Resolved]
  - Palpitations [Unknown]
  - Pain in extremity [Unknown]
  - Decreased appetite [Unknown]
  - Dysgeusia [Unknown]

NARRATIVE: CASE EVENT DATE: 2018
